FAERS Safety Report 10928951 (Version 2)
Quarter: 2015Q2

REPORT INFORMATION
  Report Type: Spontaneous
  Country: US (occurrence: US)
  Receive Date: 20150319
  Receipt Date: 20150524
  Transmission Date: 20150821
  Serious: No
  Sender: FDA-Public Use
  Company Number: US-JNJFOC-20140926616

PATIENT
  Age: 51 Year
  Sex: Male

DRUGS (2)
  1. METHYLPHENIDATE HCL (WATSON) [Suspect]
     Active Substance: METHYLPHENIDATE HYDROCHLORIDE
     Indication: ATTENTION DEFICIT/HYPERACTIVITY DISORDER
     Route: 048
     Dates: start: 2009, end: 20140914
  2. TRICOR [Concomitant]
     Active Substance: FENOFIBRATE
     Indication: BLOOD TRIGLYCERIDES INCREASED
     Route: 065
     Dates: start: 20090601

REACTIONS (4)
  - Drug ineffective [Unknown]
  - Psychomotor hyperactivity [Recovering/Resolving]
  - Feeling abnormal [Recovering/Resolving]
  - Emotional poverty [Recovering/Resolving]

NARRATIVE: CASE EVENT DATE: 20120401
